FAERS Safety Report 4878074-3 (Version None)
Quarter: 2006Q1

REPORT INFORMATION
  Report Type: 
  Country: None (occurrence: None)
  Receive Date: 20060110
  Receipt Date: 20051230
  Transmission Date: 20060701
  Serious: Yes (Hospitalization, Other)
  Sender: FDA-Public Use
  Company Number: 2006001171

PATIENT
  Age: 49 Year
  Sex: Male
  Weight: 70.3075 kg

DRUGS (3)
  1. LIPITOR [Suspect]
     Indication: BLOOD CHOLESTEROL INCREASED
     Dosage: 20 MG (20 MG, 1 IN 1 D), ORAL
     Route: 048
     Dates: start: 20020101
  2. MULTIVITAMIN [Suspect]
     Indication: ILL-DEFINED DISORDER
     Dates: start: 20020101
  3. GLUCOPHAGE [Concomitant]

REACTIONS (7)
  - ASTHENIA [None]
  - DRUG INTERACTION [None]
  - FEELING ABNORMAL [None]
  - HERNIA [None]
  - HYPOTONIA [None]
  - MYOCARDIAL INFARCTION [None]
  - VASCULAR OCCLUSION [None]
